FAERS Safety Report 17020338 (Version 6)
Quarter: 2020Q2

REPORT INFORMATION
  Report Type: Report from Study
  Country: US (occurrence: US)
  Receive Date: 20191112
  Receipt Date: 20200630
  Transmission Date: 20200713
  Serious: Yes (Hospitalization)
  Sender: FDA-Public Use
  Company Number: US-ROCHE-2461885

PATIENT
  Sex: Male

DRUGS (1)
  1. VENCLEXTA [Suspect]
     Active Substance: VENETOCLAX
     Indication: B-CELL LYMPHOMA
     Dosage: 4 TABLETS BY MOUTH EVERY DAY WITH MEAL AND WATER AT APPROXIMATELY THE SAME TIME EACH DAY
     Route: 048
     Dates: start: 201910

REACTIONS (11)
  - Dizziness [Unknown]
  - Back pain [Unknown]
  - Abdominal distension [Unknown]
  - Arthritis [Unknown]
  - Constipation [Unknown]
  - Spinal fracture [Unknown]
  - Arthralgia [Unknown]
  - Yellow skin [Unknown]
  - Fall [Unknown]
  - Myalgia [Unknown]
  - Eructation [Unknown]
